FAERS Safety Report 6523389-6 (Version None)
Quarter: 2009Q4

REPORT INFORMATION
  Report Type: 
  Country: None (occurrence: None)
  Receive Date: 20091231
  Receipt Date: 20091229
  Transmission Date: 20100525
  Serious: No
  Sender: FDA-Public Use
  Company Number: BR-ROCHE-676833

PATIENT
  Sex: Female
  Weight: 65 kg

DRUGS (2)
  1. ROACUTAN [Suspect]
     Indication: ACNE
     Route: 048
     Dates: start: 20090701, end: 20091115
  2. CONTRACEPTIVE [Concomitant]
     Indication: CONTRACEPTION
     Dates: end: 20090101

REACTIONS (2)
  - NO ADVERSE EVENT [None]
  - PREGNANCY [None]
